FAERS Safety Report 8021869-8 (Version None)
Quarter: 2012Q1

REPORT INFORMATION
  Report Type: 
  Country: None (occurrence: None)
  Receive Date: 20120104
  Receipt Date: 20111230
  Transmission Date: 20120608
  Serious: Yes (Life-Threatening, Hospitalization, Disabling)
  Sender: FDA-Public Use
  Company Number: AU-SANOFI-AVENTIS-2011SA022177

PATIENT
  Age: 67 Year
  Sex: Female
  Weight: 76.4 kg

DRUGS (25)
  1. CAPECITABINE [Suspect]
     Route: 048
     Dates: end: 20110810
  2. SALMETEROL [Concomitant]
     Indication: ASTHMA
     Dosage: 25 MCG, DOSE: 2 PUFFS
     Route: 055
  3. CAPECITABINE [Suspect]
     Indication: RECTAL CANCER
     Dosage: ACTUAL DOSE GIVEN: 1000 MG, 825 MG/M2 , BID D1-33
     Route: 048
     Dates: start: 20110221, end: 20110401
  4. THERAPEUTIC RADIOPHARMACEUTICALS [Suspect]
     Route: 065
     Dates: start: 20110221
  5. FLUTICASONE FUROATE [Concomitant]
     Indication: ASTHMA
     Dosage: DOSE: 2 PUFFS
     Route: 055
  6. METHOTREXATE [Concomitant]
     Indication: RHEUMATOID ARTHRITIS
     Route: 048
  7. FERROUS SULFATE TAB [Concomitant]
     Route: 048
  8. METOPROLOL TARTRATE [Concomitant]
     Indication: ATRIAL FIBRILLATION
     Route: 048
     Dates: start: 20110406
  9. ENOXAPARIN [Concomitant]
     Indication: ATRIAL FIBRILLATION
     Route: 058
     Dates: start: 20110626, end: 20111102
  10. THERAPEUTIC RADIOPHARMACEUTICALS [Suspect]
     Indication: RECTAL CANCER
     Dosage: 28 FRACTIONS OF RADIOTHRAPY AT A DOSE OF 1.8 GY PER FRACTION
     Route: 065
     Dates: start: 20110401
  11. COLECALCIFEROL [Concomitant]
     Indication: VITAMIN D
     Route: 048
  12. METOCLOPRAMIDE [Concomitant]
     Indication: NAUSEA
     Route: 048
     Dates: end: 20111102
  13. OXALIPLATIN [Suspect]
     Indication: RECTAL CANCER
     Dosage: ACTUAL DOSE GIVEN: 104 MG
     Route: 042
     Dates: start: 20110221, end: 20110321
  14. DICLOFENAC [Concomitant]
     Indication: RHEUMATOID ARTHRITIS
     Route: 048
  15. PREDNISOLONE [Concomitant]
     Indication: RHEUMATOID ARTHRITIS
     Route: 048
  16. ACETAMINOPHEN [Concomitant]
     Indication: PAIN
     Route: 048
  17. POTASSIUM [Concomitant]
     Route: 048
     Dates: start: 20110819, end: 20111102
  18. THERAPEUTIC RADIOPHARMACEUTICALS [Suspect]
     Route: 065
     Dates: end: 20110810
  19. VERAPAMIL [Concomitant]
     Indication: HYPERTENSION
     Route: 048
  20. PANTOPRAZOLE [Concomitant]
     Route: 048
  21. ASPIRIN [Concomitant]
     Indication: ATRIAL FIBRILLATION
  22. MAGNESIUM [Concomitant]
     Route: 048
     Dates: start: 20110819, end: 20111102
  23. OXALIPLATIN [Suspect]
     Route: 042
     Dates: end: 20110810
  24. OLMESARTAN MEDOXOMIL [Concomitant]
     Indication: HYPERTENSION
     Route: 048
  25. FOLIC ACID [Concomitant]
     Route: 048

REACTIONS (9)
  - ATRIAL FIBRILLATION [None]
  - FAILURE TO ANASTOMOSE [None]
  - HYPOALBUMINAEMIA [None]
  - DECREASED APPETITE [None]
  - DEHYDRATION [None]
  - HYPOKALAEMIA [None]
  - FEMALE GENITAL TRACT FISTULA [None]
  - URINARY TRACT INFECTION [None]
  - PYREXIA [None]
